FAERS Safety Report 9691087 (Version 1)
Quarter: 2013Q4

REPORT INFORMATION
  Report Type: Spontaneous
  Country: IE (occurrence: IE)
  Receive Date: 20131115
  Receipt Date: 20131115
  Transmission Date: 20140711
  Serious: Yes (Death)
  Sender: FDA-Public Use
  Company Number: IE-UCBSA-103066

PATIENT
  Age: 68 Year
  Sex: Female

DRUGS (2)
  1. KEPPRA [Suspect]
     Indication: EPILEPSY
     Dosage: REDUCED DOSE
     Dates: start: 2012, end: 20120630
  2. KEPPRA [Suspect]
     Indication: EPILEPSY

REACTIONS (3)
  - Pneumonia aspiration [Fatal]
  - Status epilepticus [Fatal]
  - Prescribed underdose [Fatal]
